FAERS Safety Report 10951471 (Version 4)
Quarter: 2015Q2

REPORT INFORMATION
  Report Type: Report from Study
  Country: CO (occurrence: CO)
  Receive Date: 20150324
  Receipt Date: 20150428
  Transmission Date: 20150821
  Serious: Yes (Hospitalization, Other)
  Sender: FDA-Public Use
  Company Number: PHHY2015CO033336

PATIENT
  Sex: Female

DRUGS (8)
  1. LOSARTAN [Concomitant]
     Active Substance: LOSARTAN
     Indication: PRODUCT USED FOR UNKNOWN INDICATION
     Dosage: UNK, QD
     Route: 065
  2. OMEPRAZOLE. [Concomitant]
     Active Substance: OMEPRAZOLE
     Indication: PRODUCT USED FOR UNKNOWN INDICATION
     Dosage: 40 MG, UNK
     Route: 065
  3. METFORMIN [Concomitant]
     Active Substance: METFORMIN HYDROCHLORIDE
     Indication: DIABETES MELLITUS
     Dosage: 850 MG, QD
     Route: 065
  4. AFINITOR [Suspect]
     Active Substance: EVEROLIMUS
     Indication: BREAST CANCER
     Dosage: 5 MG, BID
     Route: 048
     Dates: end: 20150314
  5. THYROXINE [Concomitant]
     Active Substance: LEVOTHYROXINE
     Indication: THYROID DISORDER
     Dosage: 100 MG, QD
     Route: 065
  6. ASPIRIN. [Concomitant]
     Active Substance: ASPIRIN
     Indication: PRODUCT USED FOR UNKNOWN INDICATION
     Dosage: UNK, QD
     Route: 065
  7. LOUTEN [Concomitant]
     Indication: GLAUCOMA
     Dosage: 1 DRP (IN EACH EYE), QD
     Route: 047
  8. TIROIDINE [Concomitant]
     Indication: PRODUCT USED FOR UNKNOWN INDICATION
     Dosage: 100 MG, UNK
     Route: 065

REACTIONS (10)
  - Diarrhoea haemorrhagic [Unknown]
  - Malignant neoplasm progression [Unknown]
  - Blood calcium abnormal [Unknown]
  - Blood glucose abnormal [Unknown]
  - Blood potassium abnormal [Unknown]
  - Mouth ulceration [Unknown]
  - Abdominal pain upper [Unknown]
  - Metastases to bone [Unknown]
  - Large intestinal ulcer [Unknown]
  - Colitis [Unknown]
